FAERS Safety Report 8843403 (Version 1)
Quarter: 2012Q4

REPORT INFORMATION
  Report Type: 
  Country: US (occurrence: US)
  Receive Date: 20121016
  Receipt Date: 20121016
  Transmission Date: 20130627
  Serious: No
  Sender: FDA-Public Use
  Company Number: US-VERTEX PHARMACEUTICAL INC.-2012-022156

PATIENT
  Age: 58 None
  Sex: Male
  Weight: 79 kg

DRUGS (6)
  1. INCIVEK [Suspect]
     Indication: HEPATITIS C
     Dosage: 750 mg, tid
     Route: 048
     Dates: start: 20120917
  2. RIBAVIRIN [Suspect]
     Indication: HEPATITIS C
     Dosage: 400 mg, bid
     Route: 048
     Dates: start: 20120917
  3. PEGASYS [Suspect]
     Indication: HEPATITIS C
     Dosage: 180 ?g, Weekly
     Route: 058
     Dates: start: 20120917
  4. ASPIRIN [Concomitant]
     Dosage: 81 mg, qd
     Route: 048
  5. IBUPROFEN [Concomitant]
     Indication: PAIN
     Dosage: 400 mg, prn
     Route: 048
  6. IBUPROFEN [Concomitant]
     Indication: PYREXIA

REACTIONS (8)
  - Headache [Not Recovered/Not Resolved]
  - Musculoskeletal chest pain [Not Recovered/Not Resolved]
  - Hypoaesthesia [Not Recovered/Not Resolved]
  - Paraesthesia [Not Recovered/Not Resolved]
  - Pain [Not Recovered/Not Resolved]
  - Dysphagia [Not Recovered/Not Resolved]
  - Feeling hot [Not Recovered/Not Resolved]
  - Fatigue [Not Recovered/Not Resolved]
